FAERS Safety Report 8319166-6 (Version None)
Quarter: 2012Q2

REPORT INFORMATION
  Report Type: 
  Country: None (occurrence: None)
  Receive Date: 20120427
  Receipt Date: 20120423
  Transmission Date: 20120825
  Serious: Yes (Other)
  Sender: FDA-Public Use
  Company Number: US-SHIRE-ALL1-2012-02076

PATIENT
  Sex: Male

DRUGS (2)
  1. ADDERALL XR 10 [Suspect]
     Indication: PRODUCT USED FOR UNKNOWN INDICATION
     Dosage: 1200 MG, 1X/DAY:QD
     Route: 048
  2. ADDERALL XR 10 [Suspect]
     Dosage: UNK, UNKNOWN
     Route: 048

REACTIONS (4)
  - OVERDOSE [None]
  - INSOMNIA [None]
  - SUICIDAL IDEATION [None]
  - ANXIETY [None]
